FAERS Safety Report 17182583 (Version 1)
Quarter: 2019Q4

REPORT INFORMATION
  Report Type: Spontaneous
  Country: GB (occurrence: GB)
  Receive Date: 20191220
  Receipt Date: 20191220
  Transmission Date: 20200122
  Serious: Yes (Other)
  Sender: FDA-Public Use
  Company Number: GB-ACCORD-166237

PATIENT
  Age: 86 Year
  Sex: Female
  Weight: 44.65 kg

DRUGS (11)
  1. LACTULOSE. [Concomitant]
     Active Substance: LACTULOSE
  2. AZITHROMYCIN ANHYDROUS. [Concomitant]
     Active Substance: AZITHROMYCIN ANHYDROUS
  3. ADCAL-D3 [Concomitant]
     Active Substance: CALCIUM CARBONATE\CHOLECALCIFEROL
  4. SALBUTAMOL [Concomitant]
     Active Substance: ALBUTEROL
  5. TEMAZEPAM. [Concomitant]
     Active Substance: TEMAZEPAM
  6. PARACETAMOL [Concomitant]
     Active Substance: ACETAMINOPHEN
  7. TRAMADOL. [Concomitant]
     Active Substance: TRAMADOL
  8. ZOLEDRONIC ACID [Suspect]
     Active Substance: ZOLEDRONIC ACID
     Indication: OSTEOPOROSIS
     Route: 042
     Dates: start: 20190408, end: 20190408
  9. LEVOTHYROXINE. [Concomitant]
     Active Substance: LEVOTHYROXINE
  10. TEARS NATURALE FREE [Concomitant]
     Active Substance: DEXTRAN 70\HYPROMELLOSE 2910 (4000 MPA.S)
  11. BIOTENE DRY MOUTH [Concomitant]

REACTIONS (1)
  - Pain in jaw [Not Recovered/Not Resolved]

NARRATIVE: CASE EVENT DATE: 20190801
